FAERS Safety Report 20024545 (Version 6)
Quarter: 2024Q2

REPORT INFORMATION
  Report Type: Report from Study
  Country: JP (occurrence: JP)
  Receive Date: 20211102
  Receipt Date: 20240628
  Transmission Date: 20240716
  Serious: Yes (Hospitalization, Other)
  Sender: FDA-Public Use
  Company Number: JP-NOVARTISPH-NVSJ2020JP007457

PATIENT
  Age: 54 Year
  Sex: Female
  Weight: 33.3 kg

DRUGS (3)
  1. KYMRIAH [Suspect]
     Active Substance: TISAGENLECLEUCEL
     Indication: Diffuse large B-cell lymphoma refractory
     Dosage: CAR-EXPRESSING T CELLS: 4.2X10^8 CELLS,FULL DOSE ADMINISTERED
     Route: 041
     Dates: start: 20200716, end: 20200716
  2. FLUDARABINE PHOSPHATE [Concomitant]
     Active Substance: FLUDARABINE PHOSPHATE
     Indication: Lymphodepletion
     Dosage: UNK
     Route: 065
     Dates: start: 20200711
  3. CYCLOPHOSPHAMIDE [Concomitant]
     Active Substance: CYCLOPHOSPHAMIDE
     Indication: Lymphodepletion
     Dosage: UNK
     Route: 065
     Dates: start: 20200711

REACTIONS (22)
  - Bone marrow failure [Recovered/Resolved]
  - Blood fibrinogen decreased [Recovering/Resolving]
  - Drug eruption [Recovered/Resolved]
  - Cytokine release syndrome [Recovered/Resolved]
  - Pyrexia [Recovering/Resolving]
  - Malaise [Unknown]
  - Hypotension [Unknown]
  - Rash [Recovered/Resolved]
  - Erythema [Recovering/Resolving]
  - Haemophagocytic lymphohistiocytosis [Unknown]
  - Pancytopenia [Recovering/Resolving]
  - White blood cell count decreased [Unknown]
  - Neutrophil count decreased [Unknown]
  - Red blood cell count decreased [Unknown]
  - Platelet count decreased [Unknown]
  - Erythropenia [Recovered/Resolved]
  - Cytopenia [Recovered/Resolved]
  - Hypogammaglobulinaemia [Not Recovered/Not Resolved]
  - Paroxysmal nocturnal haemoglobinuria [Recovered/Resolved]
  - Diffuse large B-cell lymphoma refractory [Recovered/Resolved]
  - Malignant neoplasm progression [Recovered/Resolved]
  - Rash [Recovering/Resolving]

NARRATIVE: CASE EVENT DATE: 20200717
